FAERS Safety Report 6013310-1 (Version None)
Quarter: 2008Q4

REPORT INFORMATION
  Report Type: 
  Country: None (occurrence: None)
  Receive Date: 20081218
  Receipt Date: 20081218
  Transmission Date: 20090506
  Serious: No
  Sender: FDA-Public Use
  Company Number: None

PATIENT
  Sex: Female

DRUGS (6)
  1. TOPAMAX [Suspect]
     Indication: MIGRAINE PROPHYLAXIS
     Dosage: 5 TABLETS BY MOUTH DAILY
     Route: 048
     Dates: start: 20080905, end: 20080929
  2. AMBIEN CR [Concomitant]
  3. SYNTHROID [Concomitant]
  4. AMITRIPTYLINE [Concomitant]
  5. LIPITOR [Concomitant]
  6. TOPROL-XL [Concomitant]

REACTIONS (6)
  - HEADACHE [None]
  - HYPERACUSIS [None]
  - NAUSEA [None]
  - PAROSMIA [None]
  - VERTIGO [None]
  - VISUAL IMPAIRMENT [None]
